FAERS Safety Report 11645994 (Version 2)
Quarter: 2015Q4

REPORT INFORMATION
  Report Type: Spontaneous
  Country: US (occurrence: US)
  Receive Date: 20151020
  Receipt Date: 20151116
  Transmission Date: 20160304
  Serious: Yes (Hospitalization, Other)
  Sender: FDA-Public Use
  Company Number: US-ROCHE-1602829

PATIENT
  Age: 60 Year
  Sex: Female
  Weight: 74 kg

DRUGS (11)
  1. VENTOLIN HFA [Concomitant]
     Active Substance: ALBUTEROL SULFATE
     Dosage: INHALATION AEROSOL SOLUTION, INHAKE 2 PUFFS EVERY 4-6 HOURS AS NEEDED
     Route: 065
  2. CLONAZEPAM. [Concomitant]
     Active Substance: CLONAZEPAM
     Dosage: 1 TABLET AS NEEDED
     Route: 048
  3. HYDROMET (UNITED STATES) [Concomitant]
     Dosage: 5-1.5 MG/5 ML, 1 TEASPOON EVERY 4-6 HOURS AS NEEDED
     Route: 048
     Dates: start: 20150702
  4. LYRICA [Concomitant]
     Active Substance: PREGABALIN
     Dosage: 1 CAPSULE AT BEDTIME
     Route: 048
     Dates: start: 20150605
  5. ERGOCALCIFEROL. [Concomitant]
     Active Substance: ERGOCALCIFEROL
     Dosage: 5000 UNITS (1 CAPSULE)
     Route: 048
     Dates: start: 20140204
  6. ESBRIET [Suspect]
     Active Substance: PIRFENIDONE
     Indication: IDIOPATHIC PULMONARY FIBROSIS
     Route: 048
     Dates: start: 20150106, end: 20150518
  7. CHANTIX [Concomitant]
     Active Substance: VARENICLINE TARTRATE
     Dosage: CONTINUING MONTH PACK
     Route: 048
  8. HYDROCODONE BITARTRATE/ACETAMINOPHEN [Concomitant]
     Active Substance: ACETAMINOPHEN\HYDROCODONE BITARTRATE
     Indication: PAIN
     Dosage: 5-325 MG, 1 TABLET AS NEEDED
     Route: 048
     Dates: start: 20150616
  9. GABAPENTIN. [Concomitant]
     Active Substance: GABAPENTIN
     Indication: ANXIETY
     Dosage: 1 CAPSULE AS NEEDED
     Route: 048
     Dates: start: 20141209
  10. LISINOPRIL. [Concomitant]
     Active Substance: LISINOPRIL
     Dosage: 1 TABLET
     Route: 048
     Dates: start: 20130423
  11. VITAMIN B12 [Concomitant]
     Active Substance: CYANOCOBALAMIN
     Dosage: 1 TABLET
     Route: 048

REACTIONS (8)
  - Pain in extremity [Unknown]
  - Liver function test abnormal [Unknown]
  - Drug hypersensitivity [Unknown]
  - Rhabdomyolysis [Unknown]
  - Cough [Unknown]
  - Neuralgia [Unknown]
  - Hepatotoxicity [Unknown]
  - Myalgia [Unknown]

NARRATIVE: CASE EVENT DATE: 20150803
